FAERS Safety Report 7144006-0 (Version None)
Quarter: 2010Q4

REPORT INFORMATION
  Report Type: 
  Country: None (occurrence: None)
  Receive Date: 20101208
  Receipt Date: 20101201
  Transmission Date: 20110411
  Serious: Yes (Death, Hospitalization)
  Sender: FDA-Public Use
  Company Number: US-BIOGENIDEC-2010BI041936

PATIENT
  Age: 40 Year
  Sex: Male

DRUGS (6)
  1. TYSABRI [Suspect]
     Indication: MULTIPLE SCLEROSIS
     Route: 042
     Dates: start: 20080912, end: 20101028
  2. DEPAKOTE [Concomitant]
     Indication: CONVULSION
     Dates: start: 20081001
  3. NUVIGIL [Concomitant]
     Indication: FATIGUE
     Dates: start: 20100301
  4. PERCOCET [Concomitant]
     Indication: PAIN
     Dates: start: 20091201
  5. CELEXA [Concomitant]
     Indication: ANXIETY
     Dates: start: 20081001
  6. CLONAZEPAM [Concomitant]
     Indication: ANXIETY
     Dates: start: 20081001

REACTIONS (3)
  - ABDOMINAL INJURY [None]
  - CHEST INJURY [None]
  - HEAD INJURY [None]
